FAERS Safety Report 18329286 (Version 1)
Quarter: 2020Q3

REPORT INFORMATION
  Report Type: Spontaneous
  Country: US (occurrence: US)
  Receive Date: 20200929
  Receipt Date: 20200929
  Transmission Date: 20201103
  Serious: Yes (Hospitalization)
  Sender: FDA-Public Use
  Company Number: None

PATIENT
  Sex: Male

DRUGS (16)
  1. HUMIRA [Suspect]
     Active Substance: ADALIMUMAB
     Indication: HIDRADENITIS
     Route: 058
     Dates: start: 20191108
  2. AZITHROMYCIN ANHYDROUS. [Concomitant]
     Active Substance: AZITHROMYCIN ANHYDROUS
  3. MONTELUKAST [Concomitant]
     Active Substance: MONTELUKAST SODIUM
  4. ALBUTEROL AER [Concomitant]
     Active Substance: ALBUTEROL
  5. LEVALBUTEROL NEB [Concomitant]
  6. SYMBICORT [Concomitant]
     Active Substance: BUDESONIDE\FORMOTEROL FUMARATE DIHYDRATE
  7. VENTOLIN HFA [Concomitant]
     Active Substance: ALBUTEROL SULFATE
  8. LISINIOPRIL [Concomitant]
     Active Substance: LISINOPRIL
  9. METOPROL SUC ER [Concomitant]
  10. ALBUTEROL NEB [Concomitant]
     Active Substance: ALBUTEROL
  11. ATORVASTATIN [Concomitant]
     Active Substance: ATORVASTATIN
  12. PREDNISONE. [Concomitant]
     Active Substance: PREDNISONE
  13. CHANTIX [Concomitant]
     Active Substance: VARENICLINE TARTRATE
  14. DIGOXIN. [Concomitant]
     Active Substance: DIGOXIN
  15. TOPIRAMATE. [Concomitant]
     Active Substance: TOPIRAMATE
  16. TRELEGY ELLIPT [Concomitant]

REACTIONS (2)
  - Therapy interrupted [None]
  - Lung disorder [None]
